FAERS Safety Report 6859947-9 (Version None)
Quarter: 2010Q3

REPORT INFORMATION
  Report Type: 
  Country: None (occurrence: None)
  Receive Date: 20100720
  Receipt Date: 20100707
  Transmission Date: 20110219
  Serious: Yes (Hospitalization, Congenital Anomaly)
  Sender: FDA-Public Use
  Company Number: JP-SOLVAY-00210003616

PATIENT
  Age: 0 Month
  Sex: Male

DRUGS (6)
  1. ALDOMET [Suspect]
     Indication: DRUG EXPOSURE DURING PREGNANCY
     Dosage: DAILY DOSE: 1000 MILLIGRAM(S)
     Route: 064
     Dates: start: 20040616, end: 20080120
  2. MAINTATE [Suspect]
     Indication: DRUG EXPOSURE DURING PREGNANCY
     Dosage: DAILY DOSE:  UNKNOWN
     Route: 064
  3. BLOPRESS [Suspect]
     Indication: DRUG EXPOSURE DURING PREGNANCY
     Dosage: DAILY DOSE: 16 MILLIGRAM(S)
     Route: 064
     Dates: start: 20051028, end: 20080120
  4. BLOPRESS [Suspect]
     Dosage: DAILY DOSE: 5 MILLIGRAM(S)
     Route: 064
     Dates: start: 20041230, end: 20080120
  5. COVERSYL TABLET NOS [Suspect]
     Indication: DRUG EXPOSURE DURING PREGNANCY
     Dosage: DAILY DOSE: 4 MILLIGRAM(S)
     Route: 064
     Dates: start: 20050209, end: 20060120
  6. FLUITRAN [Suspect]
     Indication: DRUG EXPOSURE DURING PREGNANCY
     Dosage: DAILY DOSE: 2 MILLIGRAM(S)
     Route: 064
     Dates: start: 20040616, end: 20080120

REACTIONS (6)
  - CONGENITAL ANOMALY [None]
  - DRUG EXPOSURE DURING PREGNANCY [None]
  - GASTROENTERITIS [None]
  - HEPATIC CYST [None]
  - KIDNEY ENLARGEMENT [None]
  - SOLITARY KIDNEY [None]
